FAERS Safety Report 11888290 (Version 1)
Quarter: 2016Q1

REPORT INFORMATION
  Report Type: Spontaneous
  Country: US (occurrence: US)
  Receive Date: 20160105
  Receipt Date: 20160105
  Transmission Date: 20160526
  Serious: No
  Sender: FDA-Public Use
  Company Number: US-HORIZON-PRE-0244-2015

PATIENT
  Age: 67 Year
  Sex: Female

DRUGS (1)
  1. RAYOS [Suspect]
     Active Substance: PREDNISONE
     Dosage: 2 MG QD

REACTIONS (2)
  - Inflammatory bowel disease [Not Recovered/Not Resolved]
  - Therapy cessation [Not Recovered/Not Resolved]
